FAERS Safety Report 4786619-7 (Version None)
Quarter: 2005Q3

REPORT INFORMATION
  Report Type: 
  Country: None (occurrence: None)
  Receive Date: 20050927
  Receipt Date: 20050624
  Transmission Date: 20060218
  Serious: No
  Sender: FDA-Public Use
  Company Number: USA0506101347

PATIENT
  Age: 40 Year
  Sex: Male

DRUGS (1)
  1. STRATTERA [Suspect]
     Dosage: 80 MG DAY

REACTIONS (2)
  - DYSURIA [None]
  - URINARY HESITATION [None]
